FAERS Safety Report 6756898-5 (Version None)
Quarter: 2010Q2

REPORT INFORMATION
  Report Type: 
  Country: None (occurrence: None)
  Receive Date: 20100604
  Receipt Date: 20100524
  Transmission Date: 20101027
  Serious: Yes (Other)
  Sender: FDA-Public Use
  Company Number: JP-PFIZER INC-2010060688

PATIENT
  Age: 25 Year
  Sex: Female
  Weight: 37 kg

DRUGS (5)
  1. SULPIRIDE [Suspect]
     Indication: DEPRESSION
     Dosage: UNK MG, UNK
     Route: 048
     Dates: start: 20090701, end: 20091126
  2. FLUVOXAMINE MALEATE [Suspect]
     Indication: DEPRESSION
     Dosage: UNK MG, UNK
     Route: 048
     Dates: start: 20090701
  3. PEROSPIRONE [Suspect]
     Indication: DEPRESSION
     Dosage: UNK MG, UNK
     Route: 048
     Dates: start: 20090701
  4. FLUNITRAZEPAM [Suspect]
     Indication: DEPRESSION
     Dosage: UNK MG, UNK
     Route: 048
     Dates: start: 20090701
  5. HALCION [Concomitant]
     Indication: DEPRESSION
     Dosage: 0.125 MG, UNK
     Route: 048
     Dates: start: 20090701

REACTIONS (2)
  - ELECTROCARDIOGRAM QT PROLONGED [None]
  - VENTRICULAR EXTRASYSTOLES [None]
